FAERS Safety Report 22173249 (Version 2)
Quarter: 2023Q2

REPORT INFORMATION
  Report Type: Spontaneous
  Country: US (occurrence: US)
  Receive Date: 20230404
  Receipt Date: 20230518
  Transmission Date: 20230722
  Serious: Yes (Other)
  Sender: FDA-Public Use
  Company Number: US-PFIZER INC-PV202300062075

PATIENT
  Age: 76 Year
  Sex: Male
  Weight: 95.238 kg

DRUGS (1)
  1. IBRANCE [Suspect]
     Active Substance: PALBOCICLIB
     Indication: Breast cancer metastatic
     Dosage: 125 MG, CYCLIC (3 WEEKS)
     Dates: start: 202210

REACTIONS (2)
  - Deafness [Unknown]
  - Tremor [Unknown]
